FAERS Safety Report 8917780 (Version 2)
Quarter: 2012Q4

REPORT INFORMATION
  Report Type: 
  Country: HU (occurrence: HU)
  Receive Date: 20121120
  Receipt Date: 20121129
  Transmission Date: 20130627
  Serious: Yes (Death, Hospitalization, Other)
  Sender: FDA-Public Use
  Company Number: HU-WATSON-2012-19705

PATIENT
  Age: 32 Year
  Sex: Male

DRUGS (5)
  1. PREDNISONE (UNKNOWN) [Suspect]
     Indication: B-CELL LYMPHOMA
     Dosage: R-CHOP 14 regimen
     Route: 065
  2. DOXORUBICIN [Suspect]
     Indication: DIFFUSE LARGE B-CELL LYMPHOMA
     Dosage: R-CHOP 14 regimen
     Route: 065
  3. CYCLOPHOSPHAMIDE [Suspect]
     Indication: DIFFUSE LARGE B-CELL LYMPHOMA
     Dosage: R-CHOP 14 regimen
     Route: 065
  4. VINCRISTINE [Suspect]
     Indication: DIFFUSE LARGE B-CELL LYMPHOMA
     Dosage: R-CHOP 14 regimen
     Route: 065
  5. RITUXIMAB [Suspect]
     Indication: DIFFUSE LARGE B-CELL LYMPHOMA
     Dosage: R-CHOP 14 regimen
     Route: 065

REACTIONS (2)
  - Liver injury [Fatal]
  - Neutropenia [Unknown]
